FAERS Safety Report 8126309-6 (Version None)
Quarter: 2012Q1

REPORT INFORMATION
  Report Type: 
  Country: None (occurrence: None)
  Receive Date: 20120209
  Receipt Date: 20120207
  Transmission Date: 20120608
  Serious: Yes (Hospitalization, Other)
  Sender: FDA-Public Use
  Company Number: US-AMGEN-USASP2011020548

PATIENT
  Age: 49 Year
  Sex: Female

DRUGS (5)
  1. ENBREL [Suspect]
     Dosage: 50 MG, UNK
     Dates: start: 20060111, end: 20061030
  2. ENBREL [Suspect]
     Dosage: 50 MG, UNK
     Dates: start: 20050725, end: 20050725
  3. ENBREL [Suspect]
     Dosage: 50 MG, QWK
     Dates: start: 20050725, end: 20101213
  4. ENBREL [Suspect]
     Dosage: 50 MG, UNK
     Dates: start: 20050802, end: 20050802
  5. ENBREL [Suspect]
     Indication: CONNECTIVE TISSUE DISORDER
     Dosage: 50 MG, QWK
     Dates: start: 20021201, end: 20060101

REACTIONS (4)
  - LYMPHADENOPATHY [None]
  - T-CELL LYMPHOMA STAGE III [None]
  - COMPRESSION FRACTURE [None]
  - PAIN [None]
